FAERS Safety Report 7373977-2 (Version None)
Quarter: 2011Q1

REPORT INFORMATION
  Report Type: 
  Country: None (occurrence: None)
  Receive Date: 20110325
  Receipt Date: 20110322
  Transmission Date: 20110831
  Serious: No
  Sender: FDA-Public Use
  Company Number: US-PFIZER INC-2011021022

PATIENT
  Sex: Male
  Weight: 88.4 kg

DRUGS (3)
  1. ALPRAZOLAM [Concomitant]
     Indication: NERVOUS SYSTEM DISORDER
     Dosage: 1 MG, 1X/DAY
     Route: 048
  2. LYRICA [Suspect]
     Indication: NEURALGIA
     Dosage: 300 MG, 1X/DAY
     Route: 048
  3. NEURONTIN [Concomitant]
     Indication: NEURALGIA
     Dosage: 300 MG, 1X/DAY
     Route: 048

REACTIONS (2)
  - PAIN IN EXTREMITY [None]
  - FEELING COLD [None]
